FAERS Safety Report 9511127 (Version 1)
Quarter: 2013Q3

REPORT INFORMATION
  Report Type: Spontaneous
  Country: US (occurrence: None)
  Receive Date: 20130905
  Receipt Date: 20130905
  Transmission Date: 20140515
  Serious: Yes (Hospitalization)
  Sender: FDA-Public Use
  Company Number: 2013AP007708

PATIENT
  Age: 40 Year
  Sex: Female

DRUGS (6)
  1. LITHIUM CARBONATE CAPSULES [Suspect]
     Indication: BIPOLAR DISORDER
  2. RINGERS LACTATE [Concomitant]
  3. ARIPIRAZOLE [Concomitant]
  4. PAROXETINE [Concomitant]
  5. PERPHENAZINE [Concomitant]
  6. ZOLPIDEM [Concomitant]

REACTIONS (6)
  - Hypernatraemia [None]
  - Delirium [None]
  - Nephrogenic diabetes insipidus [None]
  - Disorientation [None]
  - Confusional state [None]
  - Agitation [None]
